FAERS Safety Report 8249247-7 (Version None)
Quarter: 2012Q2

REPORT INFORMATION
  Report Type: 
  Country: None (occurrence: None)
  Receive Date: 20120402
  Receipt Date: 20120323
  Transmission Date: 20120825
  Serious: Yes (Hospitalization)
  Sender: FDA-Public Use
  Company Number: US-BAYER-2011-038372

PATIENT
  Age: 39 Year
  Sex: Female
  Weight: 98.866 kg

DRUGS (9)
  1. CALCIUM CARBONATE [Concomitant]
  2. LORTAB [Concomitant]
  3. CLARINEX [Concomitant]
     Dosage: UNK
     Dates: start: 20031010, end: 20090211
  4. WELLBUTRIN [Concomitant]
     Indication: DEPRESSION
  5. YASMIN [Suspect]
     Dosage: UNK
     Dates: start: 20060209, end: 20090605
  6. LEXAPRO [Concomitant]
     Indication: DEPRESSION
  7. LEXAPRO [Concomitant]
     Indication: ANXIETY
     Dosage: UNK
     Dates: start: 20031010, end: 20090211
  8. MULTI-VITAMIN [Concomitant]
  9. WELLBUTRIN [Concomitant]
     Indication: ANXIETY
     Dosage: UNK
     Dates: start: 20031010, end: 20090211

REACTIONS (4)
  - PAIN [None]
  - ANXIETY [None]
  - ANHEDONIA [None]
  - DEEP VEIN THROMBOSIS [None]
